FAERS Safety Report 14315906 (Version 4)
Quarter: 2018Q1

REPORT INFORMATION
  Report Type: Report from Study
  Country: None (occurrence: CZ)
  Receive Date: 20171221
  Receipt Date: 20180126
  Transmission Date: 20180509
  Serious: Yes (Disabling)
  Sender: FDA-Public Use
  Company Number: CZ-ABBVIE-17S-217-2198140-00

PATIENT
  Age: 32 Year
  Sex: Male
  Weight: 87 kg

DRUGS (9)
  1. NEUROL [Concomitant]
     Indication: INSOMNIA
     Dosage: AT THE BEGINNING 1 TABLET
     Route: 048
     Dates: start: 20170619, end: 20170828
  2. RIBAVIRIN. [Suspect]
     Active Substance: RIBAVIRIN
     Indication: CHRONIC HEPATITIS C
     Dosage: 2-0-3
     Route: 048
     Dates: start: 20170601, end: 20170618
  3. OMEPRAZOL [Concomitant]
     Active Substance: OMEPRAZOLE
     Indication: DYSPEPSIA
     Route: 048
  4. EXVIERA [Suspect]
     Active Substance: DASABUVIR
     Indication: CHRONIC HEPATITIS C
     Dosage: 1-0-1
     Route: 048
     Dates: start: 20170601, end: 20170826
  5. STILNOX [Concomitant]
     Active Substance: ZOLPIDEM TARTRATE
     Indication: INSOMNIA
     Dosage: 1 TABLET
     Route: 048
     Dates: start: 20170601, end: 20170617
  6. VIEKIRAX [Suspect]
     Active Substance: OMBITASVIR\PARITAPREVIR\RITONAVIR
     Indication: CHRONIC HEPATITIS C
     Dosage: 2-0-0
     Route: 048
     Dates: start: 20170601, end: 20170826
  7. RIBAVIRIN. [Suspect]
     Active Substance: RIBAVIRIN
     Indication: HEPATITIS C
     Dosage: 1-0-2
     Route: 048
     Dates: start: 20170619, end: 20170816
  8. NEUROL [Concomitant]
     Dosage: 2-3 TABLETS PER DAY
     Route: 048
     Dates: start: 20170829
  9. CITALOPRAM [Concomitant]
     Active Substance: CITALOPRAM HYDROBROMIDE
     Indication: MENTAL DISORDER
     Dosage: 1 TABLET
     Route: 048

REACTIONS (3)
  - Insomnia [Unknown]
  - Drug dependence [Unknown]
  - Mental disorder [Not Recovered/Not Resolved]

NARRATIVE: CASE EVENT DATE: 20170608
